FAERS Safety Report 4848805-7 (Version None)
Quarter: 2005Q4

REPORT INFORMATION
  Report Type: 
  Country: None (occurrence: None)
  Receive Date: 20051115
  Receipt Date: 20050830
  Transmission Date: 20060501
  Serious: No
  Sender: FDA-Public Use
  Company Number: S05-USA-04146-01

PATIENT
  Age: 45 Year
  Sex: Female

DRUGS (4)
  1. NAMENDA [Suspect]
     Indication: HUNTINGTON'S CHOREA
     Dosage: 15 MG QD PO
     Route: 048
     Dates: start: 20050824, end: 20050826
  2. NAMENDA [Suspect]
     Indication: HUNTINGTON'S CHOREA
     Dosage: 5 MG QD PO
     Route: 048
     Dates: start: 20050810, end: 20050816
  3. NAMENDA [Suspect]
     Indication: HUNTINGTON'S CHOREA
     Dosage: 5 MG BID PO
     Route: 048
     Dates: start: 20050817, end: 20050823
  4. RISPERDAL [Concomitant]

REACTIONS (1)
  - MUSCLE SPASMS [None]
